FAERS Safety Report 24102228 (Version 1)
Quarter: 2024Q3

REPORT INFORMATION
  Report Type: Spontaneous
  Country: DE (occurrence: DE)
  Receive Date: 20240717
  Receipt Date: 20240717
  Transmission Date: 20241016
  Serious: No
  Sender: ALKEM
  Company Number: DE-ALKEM LABORATORIES LIMITED-DE-ALKEM-2024-10423

PATIENT
  Age: 26 Year
  Sex: Male
  Weight: 73 kg

DRUGS (6)
  1. CLOBAZAM [Suspect]
     Active Substance: CLOBAZAM
     Indication: Product used for unknown indication
     Dosage: 20 MILLIGRAM, QD, (EVERY 1 DAY)
     Route: 065
     Dates: end: 20240411
  2. LACOSAMIDE [Suspect]
     Active Substance: LACOSAMIDE
     Indication: Product used for unknown indication
     Dosage: 400 MILLIGRAM, QD, (EVERY 1 DAY)
     Route: 065
     Dates: end: 20240411
  3. PREGABALIN [Suspect]
     Active Substance: PREGABALIN
     Indication: Product used for unknown indication
     Dosage: 50 MILLIGRAM, QD, (EVERY 1 DAY)
     Route: 065
     Dates: end: 20240411
  4. FELBAMATE [Suspect]
     Active Substance: FELBAMATE
     Indication: Product used for unknown indication
     Dosage: 1800 MILLIGRAM, QD, (EVERY 1 DAY)
     Route: 065
     Dates: end: 20240411
  5. INOVELON [Suspect]
     Active Substance: RUFINAMIDE
     Indication: Product used for unknown indication
     Dosage: 400 MILLIGRAM, QD,(EVERY 1 DAY)
     Route: 048
     Dates: start: 20240411, end: 20240411
  6. INOVELON [Suspect]
     Active Substance: RUFINAMIDE
     Dosage: 800 MILLIGRAM, QD, (EVERY 1 DAY)
     Route: 048
     Dates: end: 20240411

REACTIONS (3)
  - Somnolence [Recovering/Resolving]
  - Fatigue [Recovering/Resolving]
  - Extra dose administered [Unknown]

NARRATIVE: CASE EVENT DATE: 20240411
